FAERS Safety Report 8551046-3 (Version None)
Quarter: 2012Q3

REPORT INFORMATION
  Report Type: 
  Country: None (occurrence: None)
  Receive Date: 20120730
  Receipt Date: 20120720
  Transmission Date: 20120928
  Serious: Yes (Other)
  Sender: FDA-Public Use
  Company Number: US-ABBOTT-11P-163-0704878-00

PATIENT
  Sex: Female
  Weight: 54.48 kg

DRUGS (8)
  1. SULFASALAZINE [Concomitant]
     Indication: RHEUMATOID ARTHRITIS
  2. PREDNISONE [Concomitant]
     Indication: RHEUMATOID ARTHRITIS
  3. SULFASALAZINE [Concomitant]
     Indication: ANKYLOSING SPONDYLITIS
  4. HUMIRA [Suspect]
     Indication: ANKYLOSING SPONDYLITIS
  5. HUMIRA [Suspect]
     Indication: RHEUMATOID ARTHRITIS
     Dates: start: 20101001, end: 20101201
  6. PLACQUINEL [Concomitant]
     Indication: RHEUMATOID ARTHRITIS
  7. PLACQUINEL [Concomitant]
     Indication: ANKYLOSING SPONDYLITIS
  8. PREDNISONE [Concomitant]
     Indication: ANKYLOSING SPONDYLITIS

REACTIONS (7)
  - PHARYNGITIS STREPTOCOCCAL [None]
  - TONSILLITIS [None]
  - PAIN [None]
  - TONSILLAR HYPERTROPHY [None]
  - PYREXIA [None]
  - OROPHARYNGEAL BLISTERING [None]
  - ARTHRITIS [None]
